FAERS Safety Report 8819788 (Version 1)
Quarter: 2012Q4

REPORT INFORMATION
  Report Type: 
  Country: US (occurrence: US)
  Receive Date: 20121001
  Receipt Date: 20121001
  Transmission Date: 20130627
  Serious: Yes (Hospitalization, Other)
  Sender: FDA-Public Use
  Company Number: US-ROCHE-1131170

PATIENT
  Sex: Female

DRUGS (15)
  1. HERCEPTIN [Suspect]
     Indication: BREAST CANCER METASTATIC
     Route: 065
  2. TAXOTERE [Concomitant]
  3. DURAGESIC [Concomitant]
     Route: 065
  4. VICODIN [Concomitant]
  5. NEURONTIN [Concomitant]
     Route: 065
  6. METAMUCIL [Concomitant]
     Dosage: 3-4 tablespoon per day
     Route: 065
  7. COLACE [Concomitant]
     Dosage: 2-3 tablets per day
     Route: 065
  8. PEPTO-BISMOL [Concomitant]
  9. CELEBREX [Concomitant]
     Route: 048
  10. OXYCONTIN [Concomitant]
     Route: 065
  11. AMITRIPTYLINE [Concomitant]
  12. IBUPROFEN [Concomitant]
  13. ATIVAN [Concomitant]
  14. FLUCONAZOLE [Concomitant]
     Route: 048
  15. TAXOL [Concomitant]

REACTIONS (19)
  - Back pain [Unknown]
  - Constipation [Unknown]
  - Disease progression [Unknown]
  - Cough [Unknown]
  - Nasopharyngitis [Unknown]
  - Fatigue [Unknown]
  - Depression [Unknown]
  - Oral pain [Unknown]
  - Vulvovaginal candidiasis [Unknown]
  - Dysuria [Unknown]
  - Asthenia [Unknown]
  - Insomnia [Unknown]
  - Dizziness [Unknown]
  - Memory impairment [Unknown]
  - Vomiting [Unknown]
  - Nausea [Unknown]
  - Diarrhoea [Unknown]
  - Neurological symptom [Unknown]
  - Confusional state [Unknown]
